FAERS Safety Report 9115015 (Version 1)
Quarter: 2013Q1

REPORT INFORMATION
  Report Type: Spontaneous
  Country: US (occurrence: None)
  Receive Date: 20130220
  Receipt Date: 20130220
  Transmission Date: 20140127
  Serious: No
  Sender: FDA-Public Use
  Company Number: None

PATIENT
  Age: 77 Year
  Sex: Male
  Weight: 70.9 kg

DRUGS (1)
  1. BACITRACIN ZINC NEOMYCIN SULFATE POLYMYXIN B [Suspect]
     Indication: RASH
     Dates: end: 20130208

REACTIONS (1)
  - Rash [None]
